FAERS Safety Report 5276978-3 (Version None)
Quarter: 2007Q1

REPORT INFORMATION
  Report Type: 
  Country: None (occurrence: None)
  Receive Date: 20070327
  Receipt Date: 20061206
  Transmission Date: 20070707
  Serious: No
  Sender: FDA-Public Use
  Company Number: US-BRISTOL-MYERS SQUIBB COMPANY-13605043

PATIENT

DRUGS (1)
  1. ORENCIA [Suspect]

REACTIONS (1)
  - INFUSION RELATED REACTION [None]
